FAERS Safety Report 19918656 (Version 2)
Quarter: 2021Q4

REPORT INFORMATION
  Report Type: Spontaneous
  Country: CH (occurrence: CH)
  Receive Date: 20211004
  Receipt Date: 20211109
  Transmission Date: 20220303
  Serious: Yes (Hospitalization, Other)
  Sender: FDA-Public Use
  Company Number: None

PATIENT
  Age: 57 Year
  Sex: Male

DRUGS (15)
  1. ALDACTONE [Suspect]
     Active Substance: SPIRONOLACTONE
     Dosage: 50 MG, 2X/DAY IN THE MORNING AND EVENING
  2. DAFALGAN [Suspect]
     Active Substance: ACETAMINOPHEN
     Dosage: 500 MG, 3X/DAY MAXIMUM
  3. CANNABIDIOL\HERBALS [Suspect]
     Active Substance: CANNABIDIOL\HERBALS
  4. NIVOLUMAB [Suspect]
     Active Substance: NIVOLUMAB
     Dosage: 57 MG, CYCLIC, 4 CYCLES OF 21 DAYS
     Dates: start: 20210726, end: 20210816
  5. IPILIMUMAB [Suspect]
     Active Substance: IPILIMUMAB
     Dosage: 170 MG, CYCLIC, 4 CYCLES OF 21 DAYS
     Dates: start: 20210726, end: 20210816
  6. HYDROMORPHONE [Suspect]
     Active Substance: HYDROMORPHONE
     Dosage: 1.3 MG, 3X/DAY
  7. ESOMEPRAZOLE MAGNESIUM [Suspect]
     Active Substance: ESOMEPRAZOLE MAGNESIUM
     Dosage: 40 MG, 1X/DAY IN THE EVENING
  8. METOCLOPRAMIDE HYDROCHLORIDE [Suspect]
     Active Substance: METOCLOPRAMIDE HYDROCHLORIDE
     Indication: Nausea
     Dosage: 10 MG, 3X/DAY IN RESERVE IF NAUSEA
  9. TORSEMIDE [Concomitant]
     Active Substance: TORSEMIDE
  10. PANTOPRAZOLE [Concomitant]
     Active Substance: PANTOPRAZOLE
  11. ZOFRAN [Concomitant]
     Active Substance: ONDANSETRON HYDROCHLORIDE
  12. HALDOL [Concomitant]
     Active Substance: HALOPERIDOL
  13. LACTITOL [Concomitant]
     Active Substance: LACTITOL
  14. RIVOTRIL [Concomitant]
     Active Substance: CLONAZEPAM
  15. FENTANYL [Concomitant]
     Active Substance: FENTANYL

REACTIONS (3)
  - Liver function test abnormal [Not Recovered/Not Resolved]
  - Hepatitis [Not Recovered/Not Resolved]
  - Cholestasis [Not Recovered/Not Resolved]

NARRATIVE: CASE EVENT DATE: 20210722
